FAERS Safety Report 9749353 (Version 1)
Quarter: 2013Q4

REPORT INFORMATION
  Report Type: Spontaneous
  Country: FR (occurrence: FR)
  Receive Date: 20131212
  Receipt Date: 20131212
  Transmission Date: 20140711
  Serious: Yes (Hospitalization, Other)
  Sender: FDA-Public Use
  Company Number: FR-JNJFOC-20131205387

PATIENT
  Age: 53 Year
  Sex: Female

DRUGS (7)
  1. SIMPONI [Suspect]
     Indication: ANKYLOSING SPONDYLITIS
     Route: 058
     Dates: start: 201302, end: 201308
  2. HUMIRA [Suspect]
     Indication: ANKYLOSING SPONDYLITIS
     Route: 058
     Dates: start: 20130920, end: 20131020
  3. METHOTREXATE [Suspect]
     Indication: PRODUCT USED FOR UNKNOWN INDICATION
     Route: 065
     Dates: end: 20131025
  4. COAPROVEL [Concomitant]
     Route: 065
  5. SEROPRAM [Concomitant]
     Route: 065
  6. ALPRAZOLAM [Concomitant]
     Route: 065
  7. FOLIC ACID [Concomitant]
     Route: 065
     Dates: end: 20131026

REACTIONS (3)
  - Tuberculosis [Not Recovered/Not Resolved]
  - Neutropenia [Recovering/Resolving]
  - Drug ineffective [Unknown]
